FAERS Safety Report 17186294 (Version 5)
Quarter: 2021Q2

REPORT INFORMATION
  Report Type: Spontaneous
  Country: FR (occurrence: FR)
  Receive Date: 20191220
  Receipt Date: 20210401
  Transmission Date: 20210716
  Serious: Yes (Other)
  Sender: FDA-Public Use
  Company Number: FR-JNJFOC-20191217840

PATIENT
  Age: 61 Year
  Sex: Female

DRUGS (11)
  1. XEPLION [Suspect]
     Active Substance: PALIPERIDONE PALMITATE
     Route: 030
     Dates: start: 20191205
  2. TERCIAN [CYAMEMAZINE] [Suspect]
     Active Substance: CYAMEMAZINE
     Dates: start: 20170328, end: 20170529
  3. XEPLION [Suspect]
     Active Substance: PALIPERIDONE PALMITATE
     Dosage: DAY 0
     Route: 030
     Dates: start: 20170315
  4. TERCIAN [CYAMEMAZINE] [Suspect]
     Active Substance: CYAMEMAZINE
     Dates: end: 20170328
  5. XEPLION [Suspect]
     Active Substance: PALIPERIDONE PALMITATE
     Dosage: DAY 0
     Route: 030
     Dates: start: 20191003
  6. XEPLION [Suspect]
     Active Substance: PALIPERIDONE PALMITATE
     Route: 030
     Dates: start: 20191108, end: 20191108
  7. XEPLION [Suspect]
     Active Substance: PALIPERIDONE PALMITATE
     Indication: PRODUCT USED FOR UNKNOWN INDICATION
     Route: 030
  8. XEPLION [Suspect]
     Active Substance: PALIPERIDONE PALMITATE
     Dosage: DAY 8
     Route: 030
     Dates: start: 20191011
  9. XEPLION [Suspect]
     Active Substance: PALIPERIDONE PALMITATE
     Route: 030
     Dates: start: 20200626
  10. XEPLION [Suspect]
     Active Substance: PALIPERIDONE PALMITATE
     Route: 030
     Dates: start: 20170412
  11. XEPLION [Suspect]
     Active Substance: PALIPERIDONE PALMITATE
     Route: 030
     Dates: start: 20171019, end: 20180607

REACTIONS (28)
  - Eye discharge [Recovered/Resolved]
  - Blood pressure abnormal [Recovered/Resolved]
  - Dizziness [Not Recovered/Not Resolved]
  - Vertigo positional [Recovered/Resolved]
  - Aggression [Recovered/Resolved]
  - Headache [Unknown]
  - Musculoskeletal stiffness [Recovering/Resolving]
  - Cataract [Unknown]
  - Eyelid function disorder [Unknown]
  - White blood cell count increased [Unknown]
  - Off label use [Unknown]
  - Lacrimation increased [Recovered/Resolved]
  - Akathisia [Recovered/Resolved]
  - Mental impairment [Recovered/Resolved]
  - Impatience [Not Recovered/Not Resolved]
  - Slow response to stimuli [Recovered/Resolved]
  - Psychiatric symptom [Recovered/Resolved]
  - Migraine [Unknown]
  - Asthenia [Recovered/Resolved]
  - Insomnia [Not Recovered/Not Resolved]
  - Language disorder [Recovering/Resolving]
  - Disturbance in attention [Unknown]
  - Overdose [Unknown]
  - Refusal of treatment by patient [Unknown]
  - Dry mouth [Recovered/Resolved]
  - Pain [Recovered/Resolved]
  - Dry eye [Recovered/Resolved]
  - Hypertension [Unknown]

NARRATIVE: CASE EVENT DATE: 20170328
